FAERS Safety Report 13423985 (Version 1)
Quarter: 2017Q2

REPORT INFORMATION
  Report Type: Spontaneous
  Country: NL (occurrence: NL)
  Receive Date: 20170410
  Receipt Date: 20170410
  Transmission Date: 20170830
  Serious: Yes (Hospitalization)
  Sender: FDA-Public Use
  Company Number: NL-ALLERGAN-1713809US

PATIENT
  Age: 20 Day
  Sex: Male
  Weight: 4 kg

DRUGS (2)
  1. ESCITALOPRAM OXALATE - BP [Suspect]
     Active Substance: ESCITALOPRAM OXALATE
     Indication: MATERNAL EXPOSURE TIMING UNSPECIFIED
     Dosage: 10 MG, QD
     Route: 064
     Dates: end: 20170308
  2. REMERON TABLET [Concomitant]
     Indication: MATERNAL EXPOSURE TIMING UNSPECIFIED
     Dosage: 15 MG, UNKNOWN
     Route: 064
     Dates: start: 2016, end: 20170308

REACTIONS (7)
  - Tremor [Recovering/Resolving]
  - Drug withdrawal syndrome neonatal [Recovering/Resolving]
  - Restlessness [Recovering/Resolving]
  - Tachypnoea [Recovering/Resolving]
  - Asterixis [Recovering/Resolving]
  - Mood swings [Recovering/Resolving]
  - Foetal exposure during pregnancy [Unknown]

NARRATIVE: CASE EVENT DATE: 201703
